FAERS Safety Report 8769857 (Version 1)
Quarter: 2012Q4

REPORT INFORMATION
  Report Type: 
  Country: US (occurrence: US)
  Receive Date: 20120906
  Receipt Date: 20120906
  Transmission Date: 20130627
  Serious: Yes (Other)
  Sender: FDA-Public Use
  Company Number: US-BAYER-2012-091933

PATIENT
  Sex: Female
  Weight: 53.06 kg

DRUGS (5)
  1. BETASERON [Suspect]
     Dosage: 0.3 mg/ml, QOD
     Route: 058
  2. LOTREL [Concomitant]
     Dosage: 10-40 mg
  3. VITAMIN D [Concomitant]
     Dosage: 400 iu, UNK
  4. FISH OIL [Concomitant]
  5. CALCIUM CITRATE W/VITAMIN D NOS [Concomitant]

REACTIONS (1)
  - Abasia [Unknown]
